FAERS Safety Report 7995667-5 (Version None)
Quarter: 2011Q4

REPORT INFORMATION
  Report Type: 
  Country: None (occurrence: None)
  Receive Date: 20111220
  Receipt Date: 20111214
  Transmission Date: 20120403
  Serious: Yes (Hospitalization)
  Sender: FDA-Public Use
  Company Number: IE-BAXTER-2011BH037692

PATIENT
  Sex: Female

DRUGS (3)
  1. CEFTRIAXONE [Suspect]
     Indication: SALMONELLOSIS
     Route: 042
     Dates: end: 20111126
  2. SODIUM CHLORIDE 0.9% IN PLASTIC CONTAINER [Suspect]
     Indication: SALMONELLOSIS
     Route: 042
     Dates: end: 20111126
  3. SODIUM CHLORIDE 0.9% IN PLASTIC CONTAINER [Suspect]
     Route: 042
     Dates: end: 20111126

REACTIONS (4)
  - HEADACHE [None]
  - RASH [None]
  - PRURITUS [None]
  - MALAISE [None]
